FAERS Safety Report 9104101 (Version 1)
Quarter: 2013Q1

REPORT INFORMATION
  Report Type: Spontaneous
  Country: BR (occurrence: BR)
  Receive Date: 20130219
  Receipt Date: 20130219
  Transmission Date: 20140127
  Serious: Yes (Hospitalization)
  Sender: FDA-Public Use
  Company Number: PHHY2013BR014207

PATIENT
  Age: 87 Year
  Sex: Female
  Weight: 70 kg

DRUGS (21)
  1. EXELON PATCH [Suspect]
     Indication: SENILE DEMENTIA
     Dosage: 13.3 MG, QD
     Route: 062
  2. EXELON PATCH [Suspect]
     Dosage: 13.3 MG, QD
     Route: 062
     Dates: start: 20130122
  3. PURAN T4 [Concomitant]
  4. TORLOS [Concomitant]
  5. OMEPRAZOLE [Concomitant]
  6. AMIODARONE HYDROCHLORIDE [Concomitant]
  7. ACETYLSALICYLIC ACID [Concomitant]
  8. RISEDRONATE [Concomitant]
  9. CALCIO + VIT D [Concomitant]
  10. QUETROS [Concomitant]
  11. DAFLON                             /01026201/ [Concomitant]
  12. OLCADIL [Concomitant]
  13. ONBRIZE [Concomitant]
  14. URO-VAXOM [Concomitant]
  15. CARVEDILOL [Concomitant]
  16. CLOPIN [Concomitant]
  17. BENERVA [Concomitant]
  18. DOMPERIDONE [Concomitant]
  19. PRAMIPEXOLE DIHYDROCHLORIDE [Concomitant]
  20. LUTEIN W/VITAMINS NOS [Concomitant]
  21. VESICARE [Concomitant]

REACTIONS (9)
  - Urinary retention [Recovering/Resolving]
  - Feeling hot [Recovering/Resolving]
  - Discomfort [Unknown]
  - Incorrect dose administered [Unknown]
  - Agitation [Recovering/Resolving]
  - Application site burn [Unknown]
  - Application site pruritus [Not Recovered/Not Resolved]
  - Erythema [Not Recovered/Not Resolved]
  - Dermatitis allergic [Unknown]
